FAERS Safety Report 7269534-9 (Version None)
Quarter: 2011Q1

REPORT INFORMATION
  Report Type: 
  Country: None (occurrence: None)
  Receive Date: 20110202
  Receipt Date: 20110119
  Transmission Date: 20110831
  Serious: Yes (Hospitalization)
  Sender: FDA-Public Use
  Company Number: GB-RANBAXY-2010RR-31095

PATIENT
  Age: 16 Year
  Sex: Male
  Weight: 60 kg

DRUGS (1)
  1. ISOTRETINOIN [Suspect]
     Indication: ACNE CYSTIC
     Dosage: 80 MG, UNK

REACTIONS (11)
  - C-REACTIVE PROTEIN INCREASED [None]
  - NAUSEA [None]
  - HEADACHE [None]
  - CONFUSIONAL STATE [None]
  - COMA SCALE ABNORMAL [None]
  - ENCEPHALITIS HERPES [None]
  - MYOCLONUS [None]
  - APHASIA [None]
  - HALLUCINATION, VISUAL [None]
  - ENCEPHALOPATHY [None]
  - AMNESIA [None]
